FAERS Safety Report 9357911 (Version 1)
Quarter: 2013Q2

REPORT INFORMATION
  Report Type: Spontaneous
  Country: US (occurrence: None)
  Receive Date: 20130619
  Receipt Date: 20130619
  Transmission Date: 20140414
  Serious: Yes (Life-Threatening, Hospitalization, Disabling)
  Sender: FDA-Public Use
  Company Number: None

PATIENT
  Age: 62 Year
  Sex: Female
  Weight: 99.79 kg

DRUGS (1)
  1. LOSARTAN [Suspect]
     Indication: HYPERTENSION
     Dosage: 1 PILL
     Dates: start: 201105, end: 201205

REACTIONS (5)
  - Muscle spasms [None]
  - Musculoskeletal pain [None]
  - Asthenia [None]
  - Back disorder [None]
  - Cardiac disorder [None]
